FAERS Safety Report 6612771-4 (Version None)
Quarter: 2010Q1

REPORT INFORMATION
  Report Type: 
  Country: None (occurrence: None)
  Receive Date: 20100223
  Receipt Date: 20100209
  Transmission Date: 20100710
  Serious: Yes (Hospitalization)
  Sender: FDA-Public Use
  Company Number: 2010-0575

PATIENT
  Age: 77 Year
  Sex: Female

DRUGS (1)
  1. APO-GO AMPOULES(APOMORPHINE HYDROCHLORIDE) (APOMORPHINE HYDROCHLORIDE) [Suspect]
     Indication: DRUG USE FOR UNKNOWN INDICATION
     Dosage: 6 MG HOUR CONTINUOUS FOR 14 HOURS (6 MG, 14 IN 24 HR), SUBCUTANEOUS
     Route: 058
     Dates: start: 20081001

REACTIONS (1)
  - GENERAL PHYSICAL CONDITION ABNORMAL [None]
